FAERS Safety Report 7081725-9 (Version None)
Quarter: 2010Q4

REPORT INFORMATION
  Report Type: 
  Country: None (occurrence: None)
  Receive Date: 20101025
  Receipt Date: 20101013
  Transmission Date: 20110411
  Serious: Yes (Death, Hospitalization)
  Sender: FDA-Public Use
  Company Number: 2010SP055891

PATIENT

DRUGS (2)
  1. EPTIFIBATIDE [Suspect]
     Indication: PRODUCT USED FOR UNKNOWN INDICATION
  2. PLAVIX [Concomitant]

REACTIONS (2)
  - OVERDOSE [None]
  - PULMONARY HAEMORRHAGE [None]
